FAERS Safety Report 5877391-8 (Version None)
Quarter: 2008Q3

REPORT INFORMATION
  Report Type: 
  Country: None (occurrence: None)
  Receive Date: 20080908
  Receipt Date: 20080827
  Transmission Date: 20090109
  Serious: Yes (Hospitalization)
  Sender: FDA-Public Use
  Company Number: TW-JNJFOC-200805 05738

PATIENT
  Age: 67 Year
  Sex: Female
  Weight: 65 kg

DRUGS (21)
  1. DECITABINE (DECITABINE) LYOPHILIZED POWDER [Suspect]
     Indication: ACUTE MYELOID LEUKAEMIA
     Dosage: 31.2 MG; 31.2 MG; 31.8 MG; 31.8 MG, 1 IN 1 DAY, INTRAVENOUS
     Dates: start: 20080312, end: 20080316
  2. DECITABINE (DECITABINE) LYOPHILIZED POWDER [Suspect]
     Indication: ACUTE MYELOID LEUKAEMIA
     Dosage: 31.2 MG; 31.2 MG; 31.8 MG; 31.8 MG, 1 IN 1 DAY, INTRAVENOUS
     Dates: start: 20080409, end: 20080413
  3. DECITABINE (DECITABINE) LYOPHILIZED POWDER [Suspect]
     Indication: ACUTE MYELOID LEUKAEMIA
     Dosage: 31.2 MG; 31.2 MG; 31.8 MG; 31.8 MG, 1 IN 1 DAY, INTRAVENOUS
     Dates: start: 20080507, end: 20080511
  4. DECITABINE (DECITABINE) LYOPHILIZED POWDER [Suspect]
     Indication: ACUTE MYELOID LEUKAEMIA
     Dosage: 31.2 MG; 31.2 MG; 31.8 MG; 31.8 MG, 1 IN 1 DAY, INTRAVENOUS
     Dates: start: 20080604, end: 20080609
  5. SENNA (SENNA) [Concomitant]
  6. METOCLOPRAMIDE [Concomitant]
  7. DIPHENHYDRAMINE HCL [Concomitant]
  8. BETAMETHASONE [Concomitant]
  9. GLYCYRRHIZA (GLYCYRRHIZA EXTRACT) [Concomitant]
  10. MAGNESIUM OXIDE (MAGNESIUM OXIDE) [Concomitant]
  11. FLUNARIZINE (FLUNARIZINE) [Concomitant]
  12. MOSAPRIDE CITRATE DIHYDRATE (MOSAPRIDE CITRATE) [Concomitant]
  13. PANTOPRAZOLE SODIUM [Concomitant]
  14. VITAMIN B-COMPLEX (VITAMIN B-COMPLEX) [Concomitant]
  15. ZOLPIDEM TARTRATE [Concomitant]
  16. CEPHALEXIN (CEFALEXINE) [Concomitant]
  17. BISCODYL (BIS-CHLOROETHYLAMINO METHYLBENZOIC ACID) [Concomitant]
  18. HYDREA [Concomitant]
  19. FEXOFENADINE HCL [Concomitant]
  20. SODIUM FUSIDATE (FUSIDATE SODIUM) [Concomitant]
  21. CHLORHEXIDINE GLUCONATE [Concomitant]

REACTIONS (6)
  - ACUTE MYELOID LEUKAEMIA [None]
  - GENERAL PHYSICAL HEALTH DETERIORATION [None]
  - MALIGNANT NEOPLASM PROGRESSION [None]
  - NEUTROPENIA [None]
  - PHLEBITIS [None]
  - VASCULITIS [None]
